FAERS Safety Report 9319364 (Version 2)
Quarter: 2013Q3

REPORT INFORMATION
  Report Type: Spontaneous
  Country: GB (occurrence: GB)
  Receive Date: 20130530
  Receipt Date: 20130711
  Transmission Date: 20140515
  Serious: Yes (Other)
  Sender: FDA-Public Use
  Company Number: GB-ELI_LILLY_AND_COMPANY-GB201305005694

PATIENT
  Age: 11 Year
  Sex: Male

DRUGS (2)
  1. STRATTERA [Suspect]
     Dosage: UNK, UNKNOWN
  2. METHYLPHENIDATE [Suspect]

REACTIONS (2)
  - Intentional self-injury [Unknown]
  - Suicide attempt [Unknown]
